FAERS Safety Report 9259166 (Version 1)
Quarter: 2013Q2

REPORT INFORMATION
  Report Type: Spontaneous
  Country: US (occurrence: US)
  Receive Date: 20130426
  Receipt Date: 20130426
  Transmission Date: 20140414
  Serious: No
  Sender: FDA-Public Use
  Company Number: US-FOUGERA-2012FO001299

PATIENT
  Age: 45 Year
  Sex: Female

DRUGS (4)
  1. TRIAMCINOLONE ACETONIDE [Suspect]
     Indication: CHEILITIS
     Dates: start: 201208
  2. TRIAMCINOLONE ACETONIDE [Suspect]
     Indication: LIP PAIN
     Dates: start: 201208
  3. TRIAMCINOLONE ACETONIDE [Suspect]
     Indication: CHEILITIS
     Dates: start: 201208
  4. VALTREX [Concomitant]
     Indication: ORAL HERPES
     Route: 048
     Dates: start: 201208

REACTIONS (1)
  - Drug ineffective [Not Recovered/Not Resolved]
